FAERS Safety Report 5909374-3 (Version None)
Quarter: 2008Q4

REPORT INFORMATION
  Report Type: 
  Country: None (occurrence: None)
  Receive Date: 20081006
  Receipt Date: 20080930
  Transmission Date: 20090506
  Serious: Yes (Hospitalization)
  Sender: FDA-Public Use
  Company Number: BB-B.I. PHARMACEUTICALS,INC./RIDGEFIELD-2008-CN-00506CN

PATIENT
  Age: 85 Year
  Sex: Female

DRUGS (10)
  1. AGGRENOX [Suspect]
  2. DIOVAN [Concomitant]
  3. INDAPAMIDE [Concomitant]
  4. AMLODIPINE [Concomitant]
  5. ATENOLOL [Concomitant]
  6. GLYNASE [Concomitant]
  7. METFORMIN HCL [Concomitant]
     Dosage: 1500MG
  8. PRAXILENE [Concomitant]
     Dosage: 400MG
  9. TRENTAL [Concomitant]
     Dosage: 1 BD
  10. HYPERIUM [Concomitant]
     Dates: start: 20080915

REACTIONS (1)
  - HYPOGLYCAEMIC COMA [None]
